FAERS Safety Report 10427208 (Version 1)
Quarter: 2014Q3

REPORT INFORMATION
  Report Type: Spontaneous
  Country: US (occurrence: None)
  Receive Date: 20140902
  Receipt Date: 20140902
  Transmission Date: 20150326
  Serious: Yes (Disabling)
  Sender: FDA-Public Use
  Company Number: None

PATIENT
  Age: 34 Year
  Sex: Female
  Weight: 69.85 kg

DRUGS (1)
  1. DULOXETINE 120 MG TEVA [Suspect]
     Active Substance: DULOXETINE
     Indication: DEPRESSION
     Dosage: DULOXETINE TWICE DAILY TAKEN BY MOUTH
     Route: 048

REACTIONS (3)
  - Product substitution issue [None]
  - Panic attack [None]
  - Depression [None]
